FAERS Safety Report 7713964-5 (Version None)
Quarter: 2011Q3

REPORT INFORMATION
  Report Type: 
  Country: None (occurrence: None)
  Receive Date: 20110826
  Receipt Date: 20110818
  Transmission Date: 20111222
  Serious: Yes (Hospitalization)
  Sender: FDA-Public Use
  Company Number: JP-MERCK-1108USA01342

PATIENT
  Age: 38 Year
  Sex: Female
  Weight: 43 kg

DRUGS (9)
  1. PEPCID RPD [Suspect]
     Indication: GASTRITIS
     Route: 048
     Dates: start: 20110620, end: 20110625
  2. CAMOSTATE [Concomitant]
     Route: 065
  3. PEPCID RPD [Suspect]
     Indication: GASTROOESOPHAGEAL REFLUX DISEASE
     Route: 048
     Dates: start: 20110620, end: 20110625
  4. TALION [Concomitant]
     Route: 065
  5. GARENOXACIN MESYLATE [Concomitant]
     Route: 065
  6. CINAL [Concomitant]
     Route: 065
  7. JUVELA [Concomitant]
     Route: 065
  8. PANCREAZE [Concomitant]
     Route: 065
  9. NEUQUINON [Concomitant]
     Route: 065

REACTIONS (2)
  - ABDOMINAL PAIN UPPER [None]
  - MENSTRUATION IRREGULAR [None]
